FAERS Safety Report 7466279-7 (Version None)
Quarter: 2011Q2

REPORT INFORMATION
  Report Type: 
  Country: None (occurrence: None)
  Receive Date: 20110509
  Receipt Date: 20100715
  Transmission Date: 20111010
  Serious: No
  Sender: FDA-Public Use
  Company Number: US-ALEXION-A201000833

PATIENT
  Sex: Male

DRUGS (9)
  1. SOLIRIS [Suspect]
     Dosage: 900 MG, Q2W
     Route: 042
     Dates: start: 20100330
  2. MAGNESIUM [Concomitant]
     Dosage: UNK
  3. SOLIRIS [Suspect]
     Indication: PAROXYSMAL NOCTURNAL HAEMOGLOBINURIA
     Dosage: 600 MG, QW
     Route: 042
     Dates: start: 20100303, end: 20100324
  4. CIPRO [Concomitant]
     Dosage: UNK
  5. FOLIC ACID [Concomitant]
     Dosage: UNK
  6. FERROUS SULFATE TAB [Concomitant]
     Dosage: UNK
  7. DIFLUCAN [Concomitant]
     Dosage: UNK
  8. POTASSIUM [Concomitant]
     Dosage: UNK
  9. ACYCLOVIR [Concomitant]

REACTIONS (1)
  - HAEMOGLOBIN DECREASED [None]
